FAERS Safety Report 17686365 (Version 2)
Quarter: 2020Q2

REPORT INFORMATION
  Report Type: Other
  Country: US (occurrence: US)
  Receive Date: 20200420
  Receipt Date: 20200429
  Transmission Date: 20200714
  Serious: Yes (Other)
  Sender: FDA-Public Use
  Company Number: US-ANAZAOHEALTH CORPORATION-2083021

PATIENT
  Age: 60 Year
  Sex: Female
  Weight: 70.91 kg

DRUGS (1)
  1. 150 MG OF TESTOSTERONE PELLETS AND 10 MG OF ESTRADIOL PELLETS. ALL PE [Suspect]
     Active Substance: ESTRADIOL\TESTOSTERONE
     Indication: HORMONE REPLACEMENT THERAPY
     Route: 058
     Dates: start: 20191114, end: 20200123

REACTIONS (1)
  - Breast cancer [Recovering/Resolving]

NARRATIVE: CASE EVENT DATE: 20200123
